FAERS Safety Report 9765473 (Version 1)
Quarter: 2013Q4

REPORT INFORMATION
  Report Type: Spontaneous
  Country: US (occurrence: US)
  Receive Date: 20131217
  Receipt Date: 20131217
  Transmission Date: 20140711
  Serious: No
  Sender: FDA-Public Use
  Company Number: US-GLAXOSMITHKLINE-A1007402A

PATIENT
  Age: 70 Year
  Sex: Female

DRUGS (7)
  1. VOTRIENT [Suspect]
     Indication: RENAL CELL CARCINOMA
     Dosage: 4TAB PER DAY
     Route: 048
     Dates: start: 20130103
  2. AMLODIPINE [Concomitant]
  3. ATENOLOL [Concomitant]
  4. KEPPRA [Concomitant]
  5. DEXAMETHASONE [Concomitant]
     Dosage: 4MG AS DIRECTED
  6. MULTIVITAMIN [Concomitant]
  7. TRAVATAN [Concomitant]

REACTIONS (2)
  - Alopecia [Not Recovered/Not Resolved]
  - Ageusia [Unknown]
